FAERS Safety Report 21200018 (Version 1)
Quarter: 2022Q3

REPORT INFORMATION
  Report Type: Spontaneous
  Country: US (occurrence: None)
  Receive Date: 20220811
  Receipt Date: 20220811
  Transmission Date: 20221026
  Serious: Yes (Other)
  Sender: FDA-Public Use
  Company Number: 2022A276960

PATIENT
  Sex: Male
  Weight: 74.8 kg

DRUGS (3)
  1. FARXIGA [Suspect]
     Active Substance: DAPAGLIFLOZIN PROPANEDIOL
     Indication: End stage renal disease
     Route: 048
  2. TRADJENTA [Concomitant]
     Active Substance: LINAGLIPTIN
  3. GLIMEPIRIDE [Concomitant]
     Active Substance: GLIMEPIRIDE

REACTIONS (5)
  - Glomerular filtration rate decreased [Unknown]
  - Diarrhoea [Unknown]
  - Weight decreased [Unknown]
  - Malaise [Unknown]
  - Hypoacusis [Unknown]
